FAERS Safety Report 8440606-6 (Version None)
Quarter: 2012Q2

REPORT INFORMATION
  Report Type: 
  Country: None (occurrence: None)
  Receive Date: 20120615
  Receipt Date: 20120608
  Transmission Date: 20120825
  Serious: No
  Sender: FDA-Public Use
  Company Number: US-TEVA-342309USA

PATIENT
  Sex: Male

DRUGS (19)
  1. NUVIGIL [Suspect]
     Indication: HYPERSOMNIA
     Route: 048
  2. SERETIDE                           /01420901/ [Concomitant]
  3. OMEPRAZOLE [Concomitant]
     Indication: GASTROOESOPHAGEAL REFLUX DISEASE
  4. SERTRALINE HYDROCHLORIDE [Concomitant]
     Indication: DEPRESSION
  5. TRIGOSAMINE [Concomitant]
     Indication: ARTHRALGIA
  6. AMLODIPINE BESYLATE [Concomitant]
  7. METHOTREXATE [Concomitant]
     Indication: RHEUMATOID ARTHRITIS
  8. COLECALCIFEROL [Concomitant]
  9. LEUCOVORIN CALCIUM [Concomitant]
  10. CLONAZEPAM [Concomitant]
     Indication: NERVOUSNESS
  11. PREDNISONE TAB [Concomitant]
     Indication: ARTHRITIS
  12. VITAMIN B12 NOS [Concomitant]
  13. LOSARTAN POTASSIUM [Concomitant]
     Indication: BLOOD PRESSURE
  14. MECLIZINE [Concomitant]
     Indication: DIZZINESS
  15. IRON [Concomitant]
  16. MODAFINIL [Suspect]
     Indication: HYPERSOMNIA
     Dosage: 200 MILLIGRAM;
     Route: 048
     Dates: end: 20120607
  17. INSULIN HUMAN [Concomitant]
     Indication: DIABETES MELLITUS
  18. NITROGLYCERIN [Concomitant]
     Indication: CHEST PAIN
  19. SULFASALAZINE [Concomitant]
     Indication: RHEUMATOID ARTHRITIS

REACTIONS (2)
  - DEPRESSION [None]
  - DRUG INEFFECTIVE [None]
